FAERS Safety Report 21951228 (Version 3)
Quarter: 2024Q1

REPORT INFORMATION
  Report Type: Spontaneous
  Country: US (occurrence: US)
  Receive Date: 20230203
  Receipt Date: 20240212
  Transmission Date: 20240410
  Serious: No
  Sender: FDA-Public Use
  Company Number: US-SA-SAC20230130001525

PATIENT
  Age: 52 Year
  Sex: Male

DRUGS (2)
  1. ALPROLIX [Suspect]
     Active Substance: EFTRENONACOG ALFA
     Dosage: 7500 IU (+/- 10 % ), QW
     Route: 042
  2. ALPROLIX [Suspect]
     Active Substance: EFTRENONACOG ALFA
     Dosage: 7500 IU (+/- 10 % ), QW
     Route: 042

REACTIONS (6)
  - Haematoma [Unknown]
  - Post procedural haemorrhage [Unknown]
  - Oral pain [Unknown]
  - Mouth swelling [Unknown]
  - Tooth extraction [Unknown]
  - Product dose omission in error [Unknown]

NARRATIVE: CASE EVENT DATE: 20230519
